FAERS Safety Report 20722574 (Version 2)
Quarter: 2023Q1

REPORT INFORMATION
  Report Type: Spontaneous
  Country: AU (occurrence: AU)
  Receive Date: 20220418
  Receipt Date: 20230208
  Transmission Date: 20230418
  Serious: Yes (Other)
  Sender: FDA-Public Use
  Company Number: AU-NOVARTISPH-NVSC2022AU086751

PATIENT
  Age: 67 Year
  Sex: Male

DRUGS (2)
  1. METHOTREXATE [Suspect]
     Active Substance: METHOTREXATE
     Indication: VEXAS syndrome
     Dosage: UNK
     Route: 065
  2. MYCOPHENOLATE MOFETIL [Suspect]
     Active Substance: MYCOPHENOLATE MOFETIL
     Indication: VEXAS syndrome
     Dosage: UNK
     Route: 065

REACTIONS (2)
  - Cytopenia [Unknown]
  - Product use in unapproved indication [Unknown]
